FAERS Safety Report 7395260-1 (Version None)
Quarter: 2011Q2

REPORT INFORMATION
  Report Type: 
  Country: None (occurrence: None)
  Receive Date: 20110405
  Receipt Date: 20110322
  Transmission Date: 20111010
  Serious: Yes (Other)
  Sender: FDA-Public Use
  Company Number: PT-MYLANLABS-2011S1006203

PATIENT
  Age: 61 Year
  Sex: Female

DRUGS (8)
  1. LOSARTAN POTASSIUM [Suspect]
     Indication: HYPERTENSION
     Route: 048
  2. SITAGLIPTIN PHOSPHATE [Concomitant]
     Indication: DIABETES MELLITUS
     Route: 048
  3. ASPIRIN [Suspect]
     Route: 048
     Dates: start: 20110101
  4. CONCOR [Concomitant]
     Indication: PRODUCT USED FOR UNKNOWN INDICATION
  5. ASPIRIN [Suspect]
     Indication: PRODUCT USED FOR UNKNOWN INDICATION
     Route: 048
     Dates: end: 20110101
  6. RISIDON [Concomitant]
     Indication: DIABETES MELLITUS
     Route: 048
  7. SERMION [Suspect]
     Indication: STRESS
     Route: 048
     Dates: start: 20040101
  8. DAFLON [Concomitant]
     Indication: PRODUCT USED FOR UNKNOWN INDICATION
     Route: 048

REACTIONS (6)
  - DRUG INTERACTION [None]
  - EYE PAIN [None]
  - TINNITUS [None]
  - EPISTAXIS [None]
  - DRUG INEFFECTIVE [None]
  - HYPERTENSION [None]
